FAERS Safety Report 12274736 (Version 2)
Quarter: 2016Q2

REPORT INFORMATION
  Report Type: Report from Study
  Country: US (occurrence: US)
  Receive Date: 20160415
  Receipt Date: 20160420
  Transmission Date: 20160815
  Serious: Yes (Hospitalization, Other)
  Sender: FDA-Public Use
  Company Number: US-BMSGILMSD-2016-0208708

PATIENT
  Age: 56 Year
  Sex: Female

DRUGS (1)
  1. EFAVIRENZ/EMTRICITABINE/TENOFOVIR DISOPROXIL FUMARATE [Suspect]
     Active Substance: EFAVIRENZ\EMTRICITABINE\TENOFOVIR DISOPROXIL FUMARATE
     Indication: HIV INFECTION
     Dosage: 1100 MG, UNK
     Route: 048

REACTIONS (2)
  - Colorectal cancer [Unknown]
  - Colostomy [Unknown]

NARRATIVE: CASE EVENT DATE: 2006
